FAERS Safety Report 14678353 (Version 1)
Quarter: 2018Q1

REPORT INFORMATION
  Report Type: Spontaneous
  Country: US (occurrence: US)
  Receive Date: 20180326
  Receipt Date: 20180326
  Transmission Date: 20180509
  Serious: No
  Sender: FDA-Public Use
  Company Number: US-TEVA-2018-US-866057

PATIENT

DRUGS (1)
  1. ESTRADIOL. [Suspect]
     Active Substance: ESTRADIOL

REACTIONS (2)
  - Incorrect dose administered by device [Unknown]
  - Product quality issue [Unknown]
